FAERS Safety Report 6847750-5 (Version None)
Quarter: 2010Q3

REPORT INFORMATION
  Report Type: 
  Country: None (occurrence: None)
  Receive Date: 20100716
  Receipt Date: 20100708
  Transmission Date: 20110219
  Serious: Yes (Hospitalization)
  Sender: FDA-Public Use
  Company Number: JP-MPIJNJ-2009-02183

PATIENT

DRUGS (12)
  1. VELCADE [Suspect]
     Indication: MULTIPLE MYELOMA
     Dosage: 2.07 MG, UNK
     Route: 042
     Dates: start: 20090518, end: 20090528
  2. PREDONINE [Concomitant]
     Indication: MULTIPLE MYELOMA
     Dosage: 95 MG, UNK
     Route: 048
     Dates: start: 20090518, end: 20090521
  3. ALKERAN [Concomitant]
     Indication: MULTIPLE MYELOMA
     Dosage: 14 MG, UNK
     Route: 048
     Dates: start: 20090518, end: 20090521
  4. RABEPRAZOLE SODIUM [Concomitant]
     Indication: PROPHYLAXIS AGAINST GASTROINTESTINAL ULCER
     Dosage: 1 DF, UNK
     Route: 048
     Dates: start: 20090514
  5. NOVAMIN [Concomitant]
     Indication: PROPHYLAXIS OF NAUSEA AND VOMITING
     Dosage: 2 DF, UNK
     Route: 048
     Dates: start: 20090516
  6. OXYCONTIN [Concomitant]
     Indication: PAIN
     Dosage: 2 DF, UNK
     Route: 048
     Dates: start: 20090516
  7. LOXONIN [Concomitant]
     Dosage: 1 DF, UNK
     Route: 048
     Dates: start: 20090417
  8. VALTREX [Concomitant]
     Indication: HERPES ZOSTER
     Dosage: 1 DF, UNK
     Route: 048
     Dates: start: 20090525, end: 20090531
  9. ISODINE [Concomitant]
     Indication: STOMATITIS
     Route: 002
     Dates: start: 20090527
  10. COTRIM [Concomitant]
     Indication: ANTIFUNGAL PROPHYLAXIS
     Dosage: 1 DF, UNK
     Route: 048
     Dates: start: 20090518, end: 20090528
  11. HYPEN [Concomitant]
     Indication: PAIN
     Dosage: 2 DF, UNK
     Route: 048
     Dates: start: 20090420, end: 20090529
  12. MAG-LAX [Concomitant]
     Indication: CONSTIPATION
     Dosage: 3 DF, UNK
     Route: 048

REACTIONS (2)
  - ENTEROCOLITIS [None]
  - TUMOUR LYSIS SYNDROME [None]
